FAERS Safety Report 4662259-5 (Version None)
Quarter: 2005Q2

REPORT INFORMATION
  Report Type: 
  Country: None (occurrence: None)
  Receive Date: 20050512
  Receipt Date: 20050422
  Transmission Date: 20051028
  Serious: Yes (Hospitalization)
  Sender: FDA-Public Use
  Company Number: US_0502111957

PATIENT
  Age: 43 Year
  Sex: Female
  Weight: 64 kg

DRUGS (22)
  1. ZYPREXA [Suspect]
     Dosage: 20 MG/1 AT BEDTIME
     Dates: start: 20000301
  2. SYMBYAX [Concomitant]
  3. ALPRAZOLAM [Concomitant]
  4. WELLBUTRIN [Concomitant]
  5. PAXIL (PARACETAMOL HYDROCHLORIDE) [Concomitant]
  6. TRAZODONE HCL [Concomitant]
  7. AMARYL [Concomitant]
  8. TENORMIN (ATENOLOL EG) [Concomitant]
  9. VALIUM [Concomitant]
  10. PREVACID [Concomitant]
  11. PROPULSID [Concomitant]
  12. CENTRUM [Concomitant]
  13. AMBIEN [Concomitant]
  14. PREMARIN [Concomitant]
  15. ZITHROMAX [Concomitant]
  16. ESTRACE [Concomitant]
  17. TRICOR [Concomitant]
  18. ZETIA [Concomitant]
  19. PRILOSEC (OMEPRAZOLE RATHIOPHARM) [Concomitant]
  20. PRAVACHOL [Concomitant]
  21. LOPID [Concomitant]
  22. CRESTOR [Concomitant]

REACTIONS (6)
  - CYSTOCELE [None]
  - DIABETES MELLITUS [None]
  - HAEMATEMESIS [None]
  - HAEMOPTYSIS [None]
  - RECTOCELE [None]
  - STRESS INCONTINENCE [None]
